FAERS Safety Report 17812887 (Version 3)
Quarter: 2020Q3

REPORT INFORMATION
  Report Type: Report from Study
  Country: GB (occurrence: GB)
  Receive Date: 20200521
  Receipt Date: 20200708
  Transmission Date: 20201102
  Serious: Yes (Hospitalization)
  Sender: FDA-Public Use
  Company Number: GB-IPSEN BIOPHARMACEUTICALS, INC.-2020-06387

PATIENT
  Sex: Female

DRUGS (2)
  1. SOMATULINE AUTOGEL [Suspect]
     Active Substance: LANREOTIDE ACETATE
     Dosage: 120MG /0.5 ML
     Route: 058
     Dates: start: 202006
  2. SOMATULINE AUTOGEL [Suspect]
     Active Substance: LANREOTIDE ACETATE
     Indication: NEUROENDOCRINE TUMOUR
     Dosage: 120MG /0.5 ML
     Route: 058
     Dates: end: 202005

REACTIONS (8)
  - Blood glucose fluctuation [Unknown]
  - Thirst [Unknown]
  - Incontinence [Unknown]
  - Steatorrhoea [Unknown]
  - Hypophagia [Unknown]
  - Inappropriate schedule of product administration [Unknown]
  - Syncope [Unknown]
  - Adverse event [Unknown]
